FAERS Safety Report 7291393-9 (Version None)
Quarter: 2011Q1

REPORT INFORMATION
  Report Type: 
  Country: None (occurrence: None)
  Receive Date: 20110202
  Receipt Date: 20110121
  Transmission Date: 20110831
  Serious: Yes (Hospitalization)
  Sender: FDA-Public Use
  Company Number: 2011MA000544

PATIENT
  Age: 41 Year
  Sex: Male

DRUGS (5)
  1. METFORMIN HCL [Suspect]
     Indication: DIABETES MELLITUS
     Dosage: 1000 MG; BID
     Dates: start: 20080101
  2. SIMVASTATIN TABLETS USP, 40MG (ATLLC) (SIMVASTATIN) [Suspect]
     Indication: DYSLIPIDAEMIA
     Dosage: 40 MG;QD
  3. CON MEDS [Concomitant]
  4. GALVUS (NO PREF, NAME) [Suspect]
     Indication: TYPE 2 DIABETES MELLITUS
     Dosage: 50 MG; BID; PO
     Route: 048
     Dates: start: 20080101, end: 20101124
  5. PREV MEDS [Concomitant]

REACTIONS (3)
  - ABDOMINAL PAIN UPPER [None]
  - DRUG INEFFECTIVE [None]
  - PANCREATITIS ACUTE [None]
